FAERS Safety Report 7257751 (Version 2)
Quarter: 2012Q4

REPORT INFORMATION
  Report Type: Report from Study
  Country: JP (occurrence: JP)
  Receive Date: 20100127
  Receipt Date: 20121123
  Transmission Date: 20130627
  Serious: Yes (Other)
  Sender: FDA-Public Use
  Company Number: PHHY2010JP02828

PATIENT
  Age: 77 Year
  Sex: Male

DRUGS (13)
  1. AMN107 [Suspect]
     Indication: CHRONIC MYELOID LEUKAEMIA
     Dosage: 400 mg daily
     Route: 048
     Dates: start: 20090621, end: 20090716
  2. AMN107 [Suspect]
     Dosage: 600 mg daily
     Route: 048
     Dates: start: 20090717, end: 20090807
  3. AMN107 [Suspect]
     Dosage: 800 mg daily
     Route: 048
     Dates: start: 20090808, end: 200908
  4. AMN107 [Suspect]
     Dosage: 800 mg daily
     Route: 048
     Dates: start: 20100112
  5. TAKEPRON [Concomitant]
     Indication: PROPHYLAXIS
     Dosage: 15 mg, UNK
     Route: 048
     Dates: start: 20070620
  6. MIYA-BM [Concomitant]
     Dosage: 3 DF, UNK
     Route: 048
     Dates: start: 20070703
  7. AMLODIPINE [Concomitant]
     Dosage: 5 mg, UNK
     Route: 048
     Dates: start: 200703
  8. BLOPRESS [Concomitant]
     Dosage: 4 mg, UNK
     Route: 048
     Dates: start: 200703
  9. LIPIDIL [Concomitant]
     Dosage: 100 mg, UNK
     Route: 048
     Dates: start: 200703
  10. PREDONINE [Concomitant]
     Dosage: 5 mg, UNK
     Route: 048
     Dates: start: 20070620
  11. ALLELOCK [Concomitant]
     Dosage: 10 mg, UNK
     Route: 048
     Dates: start: 20070606
  12. NORVASC [Concomitant]
     Dosage: 5 mg, UNK
     Route: 048
     Dates: start: 20100108
  13. STEROIDS NOS [Concomitant]

REACTIONS (7)
  - Acute myocardial infarction [Recovered/Resolved]
  - Chest pain [Unknown]
  - Catheterisation cardiac [Unknown]
  - Stent placement [Unknown]
  - Intra-aortic balloon placement [Unknown]
  - Eczema [Unknown]
  - Pruritus [Unknown]
